FAERS Safety Report 21018954 (Version 88)
Quarter: 2025Q4

REPORT INFORMATION
  Report Type: Spontaneous
  Country: CA (occurrence: CA)
  Receive Date: 20220628
  Receipt Date: 20251229
  Transmission Date: 20260118
  Serious: Yes (Other)
  Sender: PFIZER
  Company Number: CA-PFIZER INC-2020321392

PATIENT
  Age: 41 Year
  Sex: Female

DRUGS (521)
  1. LANSOPRAZOLE [Suspect]
     Active Substance: LANSOPRAZOLE
     Indication: Migraine
     Dosage: 30 MILLIGRAM
  2. LANSOPRAZOLE [Suspect]
     Active Substance: LANSOPRAZOLE
     Dosage: 1 DOSAGE FORM, QD
     Route: 065
  3. LANSOPRAZOLE [Suspect]
     Active Substance: LANSOPRAZOLE
     Dosage: 30 MILLIGRAM
     Route: 065
  4. LANSOPRAZOLE [Suspect]
     Active Substance: LANSOPRAZOLE
     Dosage: UNK
  5. LANSOPRAZOLE [Suspect]
     Active Substance: LANSOPRAZOLE
     Dosage: 30 MG
  6. LANSOPRAZOLE [Suspect]
     Active Substance: LANSOPRAZOLE
     Dosage: UNK
  7. LANSOPRAZOLE [Suspect]
     Active Substance: LANSOPRAZOLE
     Dosage: UNK
     Dates: start: 20251023
  8. AZITHROMYCIN [Suspect]
     Active Substance: AZITHROMYCIN
     Indication: Migraine
     Dosage: UNK
  9. AZITHROMYCIN [Suspect]
     Active Substance: AZITHROMYCIN
     Dosage: 500 MG, 1X/DAY
  10. AZITHROMYCIN [Suspect]
     Active Substance: AZITHROMYCIN
     Dosage: UNK
  11. AZITHROMYCIN [Suspect]
     Active Substance: AZITHROMYCIN
     Dosage: UNK
  12. CIPROFLOXACIN [Suspect]
     Active Substance: CIPROFLOXACIN
     Indication: Migraine
     Dosage: 500 MILLIGRAM
     Route: 048
  13. CIPROFLOXACIN [Suspect]
     Active Substance: CIPROFLOXACIN
     Dosage: 1 DOSAGE FORM, BID
     Route: 048
     Dates: start: 20170930, end: 20170930
  14. CIPROFLOXACIN [Suspect]
     Active Substance: CIPROFLOXACIN
     Dosage: 2 DOSAGE FORM, QD
     Route: 048
  15. CIPROFLOXACIN [Suspect]
     Active Substance: CIPROFLOXACIN
     Dosage: 2 DOSAGE FORM, QD
     Route: 065
  16. CIPROFLOXACIN [Suspect]
     Active Substance: CIPROFLOXACIN
     Dosage: 2 DOSAGE FORM, QD
     Route: 065
  17. CIPROFLOXACIN [Suspect]
     Active Substance: CIPROFLOXACIN
     Dosage: 1 DOSAGE FORM, Q12H
     Route: 065
  18. CIPROFLOXACIN [Suspect]
     Active Substance: CIPROFLOXACIN
     Dosage: 2 DOSAGE FORM, BID
     Route: 048
  19. CIPROFLOXACIN [Suspect]
     Active Substance: CIPROFLOXACIN
     Dosage: 1 DOSAGE FORM, QD
     Route: 048
  20. CIPROFLOXACIN [Suspect]
     Active Substance: CIPROFLOXACIN
     Dosage: 1 DOSAGE FORM
     Route: 048
  21. CIPROFLOXACIN [Suspect]
     Active Substance: CIPROFLOXACIN
     Dosage: UNK
     Route: 065
  22. FLUCONAZOLE [Suspect]
     Active Substance: FLUCONAZOLE
     Indication: Migraine
     Dosage: 1 DOSAGE FORM
     Route: 065
  23. FLUCONAZOLE [Suspect]
     Active Substance: FLUCONAZOLE
     Dosage: 40 MG, 1X/DAY
     Route: 065
  24. FLUCONAZOLE [Suspect]
     Active Substance: FLUCONAZOLE
     Dosage: 1 DOSAGE FORM, QD
     Route: 065
  25. FLUCONAZOLE [Suspect]
     Active Substance: FLUCONAZOLE
     Dosage: 1 DF, 1X/DAY
     Dates: start: 20180424, end: 20180424
  26. HYDROMORPHONE HYDROCHLORIDE [Suspect]
     Active Substance: HYDROMORPHONE HYDROCHLORIDE
     Indication: Migraine
     Dosage: 1 DOSAGE FORM
     Route: 065
  27. HYDROMORPHONE HYDROCHLORIDE [Suspect]
     Active Substance: HYDROMORPHONE HYDROCHLORIDE
     Dosage: 1 DF, 2X/DAY (1 DOSAGE FORM Q12H)
     Route: 065
     Dates: start: 20140203, end: 20140203
  28. HYDROMORPHONE HYDROCHLORIDE [Suspect]
     Active Substance: HYDROMORPHONE HYDROCHLORIDE
     Dosage: 1 DF, 2X/DAY (1 DOSAGE FORM Q12H)
     Route: 065
     Dates: start: 20140402, end: 20140402
  29. HYDROMORPHONE HYDROCHLORIDE [Suspect]
     Active Substance: HYDROMORPHONE HYDROCHLORIDE
     Dosage: 1 DOSAGE FORM Q12H
     Route: 065
     Dates: start: 20140325, end: 20140325
  30. HYDROMORPHONE HYDROCHLORIDE [Suspect]
     Active Substance: HYDROMORPHONE HYDROCHLORIDE
     Dosage: 1 DF, 2X/DAY (1 DOSAGE FORM Q12H)
     Route: 065
     Dates: start: 20140612, end: 20140612
  31. HYDROMORPHONE HYDROCHLORIDE [Suspect]
     Active Substance: HYDROMORPHONE HYDROCHLORIDE
     Dosage: 1 DF, 2X/DAY (1 DOSAGE FORM Q12H)
     Route: 005
     Dates: start: 20140813, end: 20140813
  32. HYDROMORPHONE HYDROCHLORIDE [Suspect]
     Active Substance: HYDROMORPHONE HYDROCHLORIDE
     Dosage: 1 DF, 2X/DAY (1 DOSAGE FORM Q12H)
     Route: 065
     Dates: start: 20141113, end: 20141113
  33. HYDROMORPHONE HYDROCHLORIDE [Suspect]
     Active Substance: HYDROMORPHONE HYDROCHLORIDE
     Dosage: 1 DF, 2X/DAY (1 DOSAGE FORM Q12H)
     Route: 065
     Dates: start: 20141128, end: 20141128
  34. HYDROMORPHONE HYDROCHLORIDE [Suspect]
     Active Substance: HYDROMORPHONE HYDROCHLORIDE
     Dosage: 1 DF, 2X/DAY (1 DOSAGE FORM Q12H)
     Route: 065
     Dates: start: 20150121, end: 20150121
  35. HYDROMORPHONE HYDROCHLORIDE [Suspect]
     Active Substance: HYDROMORPHONE HYDROCHLORIDE
     Dosage: 1 DF, 2X/DAY (1 DOSAGE FORM Q12H)
     Route: 065
     Dates: start: 20150227, end: 20150227
  36. HYDROMORPHONE HYDROCHLORIDE [Suspect]
     Active Substance: HYDROMORPHONE HYDROCHLORIDE
     Dosage: 1 DF, 2X/DAY (1 DOSAGE FORM Q12H)
     Route: 065
     Dates: start: 20150413, end: 20150413
  37. HYDROMORPHONE HYDROCHLORIDE [Suspect]
     Active Substance: HYDROMORPHONE HYDROCHLORIDE
     Dosage: 1 DF, 2X/DAY (1 DOSAGE FORM Q12H)
     Route: 065
     Dates: start: 20150506, end: 20150510
  38. HYDROMORPHONE HYDROCHLORIDE [Suspect]
     Active Substance: HYDROMORPHONE HYDROCHLORIDE
     Dosage: 1 DF, 2X/DAY (1 DOSAGE FORM Q12H)
     Route: 065
     Dates: start: 20150709, end: 20150902
  39. HYDROMORPHONE HYDROCHLORIDE [Suspect]
     Active Substance: HYDROMORPHONE HYDROCHLORIDE
     Dosage: 1 DF, 2X/DAY (1 DOSAGE FORM Q12H)
     Route: 065
     Dates: start: 20151013, end: 20151207
  40. HYDROMORPHONE HYDROCHLORIDE [Suspect]
     Active Substance: HYDROMORPHONE HYDROCHLORIDE
     Dosage: 1 DF, 2X/DAY (1 DOSAGE FORM Q12H)
     Route: 065
     Dates: start: 20151216, end: 20160226
  41. HYDROMORPHONE HYDROCHLORIDE [Suspect]
     Active Substance: HYDROMORPHONE HYDROCHLORIDE
     Dosage: 1 DF, 2X/DAY (1 DOSAGE FORM Q12H)
     Route: 065
     Dates: start: 20160322, end: 20160516
  42. HYDROMORPHONE HYDROCHLORIDE [Suspect]
     Active Substance: HYDROMORPHONE HYDROCHLORIDE
     Dosage: 1 DF, 2X/DAY (1 DOSAGE FORM Q12H)
     Route: 065
     Dates: start: 20160418, end: 20160418
  43. HYDROMORPHONE HYDROCHLORIDE [Suspect]
     Active Substance: HYDROMORPHONE HYDROCHLORIDE
     Dosage: 1 DF, 2X/DAY (1 DOSAGE FORM Q12H)
     Route: 065
     Dates: start: 20160609, end: 20161027
  44. HYDROMORPHONE HYDROCHLORIDE [Suspect]
     Active Substance: HYDROMORPHONE HYDROCHLORIDE
     Dosage: 1 DF, 2X/DAY (1 DOSAGE FORM Q12H)
     Route: 065
     Dates: start: 20161116, end: 20170116
  45. HYDROMORPHONE HYDROCHLORIDE [Suspect]
     Active Substance: HYDROMORPHONE HYDROCHLORIDE
     Dosage: 1 DF, 2X/DAY(1 DOSAGE FORM Q12H)
     Route: 065
     Dates: start: 20170118, end: 20170410
  46. HYDROMORPHONE HYDROCHLORIDE [Suspect]
     Active Substance: HYDROMORPHONE HYDROCHLORIDE
     Dosage: 1 DF, 2X/DAY (1 DOSAGE FORM Q12H)
     Route: 065
     Dates: start: 20170505, end: 20170921
  47. HYDROMORPHONE HYDROCHLORIDE [Suspect]
     Active Substance: HYDROMORPHONE HYDROCHLORIDE
     Dosage: 1 DF, 2X/DAY (1 DOSAGE FORM Q12H)
     Route: 065
     Dates: start: 20171018, end: 20180303
  48. HYDROMORPHONE HYDROCHLORIDE [Suspect]
     Active Substance: HYDROMORPHONE HYDROCHLORIDE
     Dosage: 1 DF, 2X/DAY (1 DOSAGE FORM Q12H)
     Route: 065
     Dates: start: 20180316, end: 20180821
  49. HYDROMORPHONE HYDROCHLORIDE [Suspect]
     Active Substance: HYDROMORPHONE HYDROCHLORIDE
     Dosage: 1 DF, 2X/DAY (1 DOSAGE FORM Q12H)
     Route: 065
     Dates: start: 20200213
  50. HYDROMORPHONE HYDROCHLORIDE [Suspect]
     Active Substance: HYDROMORPHONE HYDROCHLORIDE
     Dosage: 1 DF, 2X/DAY
     Route: 065
  51. HYDROMORPHONE HYDROCHLORIDE [Suspect]
     Active Substance: HYDROMORPHONE HYDROCHLORIDE
     Dosage: 1 DF, 2X/DAY
     Route: 065
  52. HYDROMORPHONE HYDROCHLORIDE [Suspect]
     Active Substance: HYDROMORPHONE HYDROCHLORIDE
     Dosage: 1 DF, 2X/DAY
     Route: 065
  53. HYDROMORPHONE HYDROCHLORIDE [Suspect]
     Active Substance: HYDROMORPHONE HYDROCHLORIDE
     Dosage: 1 DF, 2X/DAY
     Route: 065
  54. HYDROMORPHONE HYDROCHLORIDE [Suspect]
     Active Substance: HYDROMORPHONE HYDROCHLORIDE
     Dosage: UNK
     Route: 065
  55. HYDROMORPHONE HYDROCHLORIDE [Suspect]
     Active Substance: HYDROMORPHONE HYDROCHLORIDE
     Dosage: 2 DOSAGE FORM, QD
     Route: 065
  56. ACETAMINOPHEN [Suspect]
     Active Substance: ACETAMINOPHEN
     Indication: Migraine
     Dosage: 10 MILLIGRAM
     Route: 065
  57. CODEINE [Suspect]
     Active Substance: CODEINE
     Indication: Migraine
     Dosage: 40 MILLIGRAM
     Route: 048
  58. CODEINE [Suspect]
     Active Substance: CODEINE
     Dosage: UNK
     Route: 048
     Dates: start: 20130130, end: 20130130
  59. TOPIRAMATE [Suspect]
     Active Substance: TOPIRAMATE
     Indication: Migraine
     Dosage: 25 MILLIGRAM
     Route: 065
  60. TOPIRAMATE [Suspect]
     Active Substance: TOPIRAMATE
     Dosage: UNK
     Route: 065
  61. METRONIDAZOLE [Suspect]
     Active Substance: METRONIDAZOLE
     Indication: Migraine
     Dosage: 5 MILLIGRAM
     Route: 065
  62. METRONIDAZOLE [Suspect]
     Active Substance: METRONIDAZOLE
     Dosage: UNK
     Route: 065
  63. SERTRALINE HYDROCHLORIDE [Suspect]
     Active Substance: SERTRALINE HYDROCHLORIDE
     Indication: Migraine
     Dosage: 500 MILLIGRAM
     Route: 065
  64. SERTRALINE HYDROCHLORIDE [Suspect]
     Active Substance: SERTRALINE HYDROCHLORIDE
     Dosage: 50 MG
     Route: 065
  65. SERTRALINE HYDROCHLORIDE [Suspect]
     Active Substance: SERTRALINE HYDROCHLORIDE
     Dosage: 50 MG
     Route: 065
  66. VENLAFAXINE HCL [Suspect]
     Active Substance: VENLAFAXINE HYDROCHLORIDE
     Dosage: 75 MILLIGRAM
     Dates: start: 201601, end: 202103
  67. VENLAFAXINE HCL [Suspect]
     Active Substance: VENLAFAXINE HYDROCHLORIDE
     Dosage: 150 MILLIGRAM
  68. VENLAFAXINE HCL [Suspect]
     Active Substance: VENLAFAXINE HYDROCHLORIDE
     Dosage: UNK
  69. VENLAFAXINE HCL [Suspect]
     Active Substance: VENLAFAXINE HYDROCHLORIDE
     Dosage: 150 MG
     Route: 065
  70. VENLAFAXINE HCL [Suspect]
     Active Substance: VENLAFAXINE HYDROCHLORIDE
     Dosage: UNK
  71. LISINOPRIL [Suspect]
     Active Substance: LISINOPRIL
     Indication: Migraine
     Dosage: 1 DF, 1X/DAY
     Route: 048
  72. LISINOPRIL [Suspect]
     Active Substance: LISINOPRIL
     Dosage: 1 DF, 1X/DAY
     Route: 065
  73. LISINOPRIL [Suspect]
     Active Substance: LISINOPRIL
     Dosage: 2 DF, 1X/DAY
     Route: 048
  74. LISINOPRIL [Suspect]
     Active Substance: LISINOPRIL
     Dosage: 1 DF, 1X/DAY (1 EVERY 1 DAYS)
     Route: 048
  75. LISINOPRIL [Suspect]
     Active Substance: LISINOPRIL
     Dosage: 1 DF, 1 EVERY 1(DAYS)
  76. PROPRANOLOL HYDROCHLORIDE [Suspect]
     Active Substance: PROPRANOLOL HYDROCHLORIDE
     Indication: Migraine
     Dosage: 40 MILLIGRAM
     Route: 048
  77. PROPRANOLOL HYDROCHLORIDE [Suspect]
     Active Substance: PROPRANOLOL HYDROCHLORIDE
     Dosage: 80 MILLIGRAM, Q6MONTHS
     Route: 048
     Dates: start: 202001, end: 202101
  78. PROPRANOLOL HYDROCHLORIDE [Suspect]
     Active Substance: PROPRANOLOL HYDROCHLORIDE
     Dosage: 80 MILLIGRAM
     Route: 048
     Dates: start: 202001, end: 202101
  79. PROPRANOLOL HYDROCHLORIDE [Suspect]
     Active Substance: PROPRANOLOL HYDROCHLORIDE
     Dosage: 40 MG
     Route: 065
  80. PROPRANOLOL HYDROCHLORIDE [Suspect]
     Active Substance: PROPRANOLOL HYDROCHLORIDE
     Dosage: 80 MG
     Route: 065
  81. PROPRANOLOL HYDROCHLORIDE [Suspect]
     Active Substance: PROPRANOLOL HYDROCHLORIDE
     Dosage: 80 MG
     Route: 065
  82. PROPRANOLOL HYDROCHLORIDE [Suspect]
     Active Substance: PROPRANOLOL HYDROCHLORIDE
     Dosage: 40 MG
     Route: 065
  83. METOCLOPRAMIDE HYDROCHLORIDE [Suspect]
     Active Substance: METOCLOPRAMIDE HYDROCHLORIDE
     Indication: Migraine
     Dosage: 5 MG
     Route: 065
  84. METOCLOPRAMIDE HYDROCHLORIDE [Suspect]
     Active Substance: METOCLOPRAMIDE HYDROCHLORIDE
     Dosage: 10 MG
     Route: 065
  85. METOCLOPRAMIDE HYDROCHLORIDE [Suspect]
     Active Substance: METOCLOPRAMIDE HYDROCHLORIDE
     Dosage: 2 DOSAGE FORM
     Route: 065
  86. METOCLOPRAMIDE HYDROCHLORIDE [Suspect]
     Active Substance: METOCLOPRAMIDE HYDROCHLORIDE
     Dosage: 1 DOSAGE FORM
     Route: 065
  87. METOCLOPRAMIDE HYDROCHLORIDE [Suspect]
     Active Substance: METOCLOPRAMIDE HYDROCHLORIDE
     Dosage: 1 DOSAGE FORM, Q4HR
  88. AMOXICILLIN [Suspect]
     Active Substance: AMOXICILLIN
     Dosage: 2 DF, 3X/DAY  (2 DOSAGE FORMS, 3 HR)
     Route: 065
  89. AMOXICILLIN [Suspect]
     Active Substance: AMOXICILLIN
     Dosage: 6 DF, 3X/DAY
     Route: 065
  90. AMOXICILLIN [Suspect]
     Active Substance: AMOXICILLIN
     Dosage: 2 DF, 1X/DAY
     Route: 065
  91. AMOXICILLIN [Suspect]
     Active Substance: AMOXICILLIN
     Dosage: 6 DF, DAILY
     Route: 065
  92. ESCITALOPRAM OXALATE [Suspect]
     Active Substance: ESCITALOPRAM OXALATE
     Indication: Migraine
     Dosage: 10 MILLIGRAM
     Route: 048
  93. ESCITALOPRAM OXALATE [Suspect]
     Active Substance: ESCITALOPRAM OXALATE
     Dosage: 10 MILLIGRAM
     Route: 048
  94. ESOMEPRAZOLE [Suspect]
     Active Substance: ESOMEPRAZOLE
     Indication: Migraine
     Dosage: 40 MG
     Route: 048
  95. ESOMEPRAZOLE [Suspect]
     Active Substance: ESOMEPRAZOLE
     Dosage: 100 MG
  96. ESOMEPRAZOLE [Suspect]
     Active Substance: ESOMEPRAZOLE
     Dosage: UNK
     Route: 065
  97. RIZATRIPTAN BENZOATE [Suspect]
     Active Substance: RIZATRIPTAN BENZOATE
     Indication: Migraine
     Dosage: 10 MILLIGRAM, QD
     Route: 065
  98. RIZATRIPTAN BENZOATE [Suspect]
     Active Substance: RIZATRIPTAN BENZOATE
     Dosage: 1 DOSAGE FORM, QD
     Route: 065
  99. RIZATRIPTAN BENZOATE [Suspect]
     Active Substance: RIZATRIPTAN BENZOATE
     Dosage: 1 DOSAGE FORM
     Route: 065
  100. RIZATRIPTAN BENZOATE [Suspect]
     Active Substance: RIZATRIPTAN BENZOATE
     Dosage: 10 MG, 1X/DAY (1 EVERY 1 DAYS)
     Route: 065
  101. RIZATRIPTAN BENZOATE [Suspect]
     Active Substance: RIZATRIPTAN BENZOATE
     Dosage: 10 MILLIGRAM
     Route: 065
  102. RIZATRIPTAN BENZOATE [Suspect]
     Active Substance: RIZATRIPTAN BENZOATE
     Dosage: UNK
  103. RIZATRIPTAN BENZOATE [Suspect]
     Active Substance: RIZATRIPTAN BENZOATE
     Dosage: QD (1 EVERY 1 DAYS)
     Route: 065
  104. DEXAMETHASONE [Suspect]
     Active Substance: DEXAMETHASONE
     Indication: Migraine
     Dosage: 1 DF, 1X/DAY
     Route: 048
     Dates: start: 20180618, end: 20180618
  105. DEXAMETHASONE [Suspect]
     Active Substance: DEXAMETHASONE
     Dosage: 2 MILLIGRAM, QD
     Route: 048
  106. DEXAMETHASONE [Suspect]
     Active Substance: DEXAMETHASONE
     Dosage: 1 DOSAGE FORM
     Route: 048
  107. DEXAMETHASONE [Suspect]
     Active Substance: DEXAMETHASONE
     Dosage: 2 MILLIGRAM
     Route: 048
  108. DEXAMETHASONE [Suspect]
     Active Substance: DEXAMETHASONE
     Dosage: 1 DOSAGE FORM
     Route: 048
  109. DEXAMETHASONE [Suspect]
     Active Substance: DEXAMETHASONE
     Dosage: 1 DOSAGE FORM, QD (ORAL LIQUID)
  110. DEXAMETHASONE [Suspect]
     Active Substance: DEXAMETHASONE
     Dosage: 2 MG (ORAL LIQUID)
  111. DEXAMETHASONE [Suspect]
     Active Substance: DEXAMETHASONE
     Dosage: 1 DOSAGE FORM, QD (ORAL LIQUID)
  112. DEXAMETHASONE [Suspect]
     Active Substance: DEXAMETHASONE
     Dosage: UNK
  113. MORPHINE HYDROCHLORIDE \SCOPOLAMINE HYDROBROMIDE \SPARTEINE SULFATE [Suspect]
     Active Substance: MORPHINE HYDROCHLORIDE\SCOPOLAMINE HYDROBROMIDE\SPARTEINE SULFATE
     Indication: Migraine
     Dosage: 10 MILLIGRAM
     Route: 065
  114. ACETAMINOPHEN\BUTYLSCOPOLAMINE BROMIDE [Suspect]
     Active Substance: ACETAMINOPHEN\BUTYLSCOPOLAMINE BROMIDE
     Indication: Migraine
     Dosage: 10 MILLIGRAM
     Route: 065
  115. ACETAMINOPHEN\BUTYLSCOPOLAMINE BROMIDE [Suspect]
     Active Substance: ACETAMINOPHEN\BUTYLSCOPOLAMINE BROMIDE
     Dosage: 1 DOSAGE FORM
     Route: 065
  116. ACETAMINOPHEN\BUTYLSCOPOLAMINE BROMIDE [Suspect]
     Active Substance: ACETAMINOPHEN\BUTYLSCOPOLAMINE BROMIDE
     Dosage: UNK
     Route: 065
  117. BOTULINUM TOXIN TYPE A [Suspect]
     Active Substance: BOTULINUM TOXIN TYPE A
     Dosage: 200 IU
     Route: 065
     Dates: start: 201804, end: 202103
  118. BOTULINUM TOXIN TYPE A [Suspect]
     Active Substance: BOTULINUM TOXIN TYPE A
     Dosage: UNK
     Route: 030
  119. BOTULINUM TOXIN TYPE A [Suspect]
     Active Substance: BOTULINUM TOXIN TYPE A
     Dosage: UNK
     Route: 030
     Dates: start: 2020
  120. BOTULINUM TOXIN TYPE A [Suspect]
     Active Substance: BOTULINUM TOXIN TYPE A
     Dosage: 200 INTERNATIONAL UNIT
     Route: 065
  121. BOTULINUM TOXIN TYPE A [Suspect]
     Active Substance: BOTULINUM TOXIN TYPE A
     Dosage: 200 INTERNATIONAL UNIT(FREQUENCY UNKNOWN)
     Route: 030
  122. BOTULINUM TOXIN TYPE A [Suspect]
     Active Substance: BOTULINUM TOXIN TYPE A
     Dosage: UNK
     Route: 065
     Dates: start: 2020
  123. BOTULINUM TOXIN TYPE A [Suspect]
     Active Substance: BOTULINUM TOXIN TYPE A
     Dosage: UNK (THERAPY DURATION 4 YEARS)
     Route: 065
  124. CLARITHROMYCIN [Suspect]
     Active Substance: CLARITHROMYCIN
     Indication: Migraine
     Dosage: 1 DOSAGE FORM, BID
     Route: 065
     Dates: start: 20130130, end: 20130130
  125. CLARITHROMYCIN [Suspect]
     Active Substance: CLARITHROMYCIN
     Dosage: 1 DOSAGE FORM
     Route: 065
     Dates: start: 20130130
  126. CLARITHROMYCIN [Suspect]
     Active Substance: CLARITHROMYCIN
     Dosage: 1 DOSAGE FORM, QD
     Route: 065
     Dates: start: 20130130
  127. CLARITHROMYCIN [Suspect]
     Active Substance: CLARITHROMYCIN
     Dosage: 2 DOSAGE FORM, QD
     Route: 065
     Dates: start: 20130130
  128. CLARITHROMYCIN [Suspect]
     Active Substance: CLARITHROMYCIN
     Dosage: 1 DF, 1X/DAY
     Dates: start: 20130130
  129. CLARITHROMYCIN [Suspect]
     Active Substance: CLARITHROMYCIN
     Dosage: 1 DOSAGE FORM, QD
     Route: 065
  130. INDOMETHACIN [Suspect]
     Active Substance: INDOMETHACIN
     Indication: Migraine
     Dosage: 1 DF, 2X/DAY (1 DOSAGE FORMS, 12 HR)
     Route: 054
     Dates: start: 20121017, end: 20121130
  131. INDOMETHACIN [Suspect]
     Active Substance: INDOMETHACIN
     Dosage: 1 DOSAGE FORM, BID (1 DOSAGE FORMS, 12 HR)
     Route: 054
     Dates: start: 20130102, end: 20130102
  132. INDOMETHACIN [Suspect]
     Active Substance: INDOMETHACIN
     Dosage: 1 DF, 2X/DAY (1 DOSAGE FORMS, 12 HR)
     Route: 054
     Dates: start: 20130306, end: 20130306
  133. INDOMETHACIN [Suspect]
     Active Substance: INDOMETHACIN
     Dosage: 1 DF, 2X/DAY (1 DOSAGE FORMS, 12 HR)
     Route: 054
     Dates: start: 20130430, end: 20130620
  134. INDOMETHACIN [Suspect]
     Active Substance: INDOMETHACIN
     Dosage: 1 DF, 2X/DAY (1 DOSAGE FORMS, 12 HR)
     Route: 054
     Dates: start: 20130523, end: 20130707
  135. INDOMETHACIN [Suspect]
     Active Substance: INDOMETHACIN
     Dosage: 1 DOSAGE FORM
     Route: 054
  136. INDOMETHACIN [Suspect]
     Active Substance: INDOMETHACIN
     Dosage: UNK UNK, BID
     Route: 065
  137. INDOMETHACIN [Suspect]
     Active Substance: INDOMETHACIN
     Dosage: 1 DF, 2X/DAY (1 DOSAGE FORMS, 12 HR)
     Route: 054
     Dates: start: 20130731, end: 20130731
  138. INDOMETHACIN [Suspect]
     Active Substance: INDOMETHACIN
     Dosage: 1 DF, 2X/DAY (1 DOSAGE FORMS, 12 HR)
     Route: 054
     Dates: start: 20130925, end: 20130925
  139. INDOMETHACIN [Suspect]
     Active Substance: INDOMETHACIN
     Dosage: 1 DF, 2X/DAY (1 DOSAGE FORMS, 12 HR)
     Route: 054
     Dates: start: 20131114, end: 20131114
  140. INDOMETHACIN [Suspect]
     Active Substance: INDOMETHACIN
     Dosage: 1 DF, 2X/DAY (1 DOSAGE FORMS, 12 HR)
     Route: 054
     Dates: start: 20140108, end: 20140108
  141. INDOMETHACIN [Suspect]
     Active Substance: INDOMETHACIN
     Dosage: 1 DF, 2X/DAY(1 DOSAGE FORMS, 12 HR)
     Route: 054
     Dates: start: 20140325, end: 20140325
  142. INDOMETHACIN [Suspect]
     Active Substance: INDOMETHACIN
     Dosage: 1 DF, 2X/DAY (1 DOSAGE FORMS, 12 HR)
     Route: 054
     Dates: start: 20140325, end: 20140325
  143. INDOMETHACIN [Suspect]
     Active Substance: INDOMETHACIN
     Dosage: 1 DF, 2X/DAY (1 DOSAGE FORMS, 12 HR)
     Route: 054
     Dates: start: 20140612, end: 20140813
  144. INDOMETHACIN [Suspect]
     Active Substance: INDOMETHACIN
     Dosage: 1 DF, 2X/DAY (1 DOSAGE FORMS, 12 HR)
     Route: 054
     Dates: start: 20140612, end: 20140612
  145. INDOMETHACIN [Suspect]
     Active Substance: INDOMETHACIN
     Dosage: 1 DF, 2X/DAY (1 DOSAGE FORMS, 12 HR)
     Route: 054
     Dates: start: 20140813, end: 20140813
  146. INDOMETHACIN [Suspect]
     Active Substance: INDOMETHACIN
     Dosage: 1 DF, 2X/DAY (1 DOSAGE FORMS, 12 HR)
     Route: 054
     Dates: start: 20140813, end: 20140813
  147. INDOMETHACIN [Suspect]
     Active Substance: INDOMETHACIN
     Dosage: 1 DF, 2X/DAY (1 DOSAGE FORMS, 12 HR)
     Route: 054
     Dates: start: 20141103, end: 20141103
  148. INDOMETHACIN [Suspect]
     Active Substance: INDOMETHACIN
     Dosage: 1 DF, 2X/DAY (1 DOSAGE FORMS, 12 HR)
     Route: 054
     Dates: start: 20141103, end: 20141103
  149. INDOMETHACIN [Suspect]
     Active Substance: INDOMETHACIN
     Dosage: 1 DF, 2X/DAY (1 DOSAGE FORMS, 12 HR)
     Route: 054
     Dates: start: 20150121, end: 20150121
  150. INDOMETHACIN [Suspect]
     Active Substance: INDOMETHACIN
     Dosage: 1 DF, 2X/DAY (1 DOSAGE FORMS, 12 HR)
     Route: 054
     Dates: start: 20151216, end: 20151216
  151. INDOMETHACIN [Suspect]
     Active Substance: INDOMETHACIN
     Dosage: 1 DF, 2X/DAY (1 DOSAGE FORMS, 12 HR)
     Route: 054
     Dates: start: 20161116, end: 20161116
  152. INDOMETHACIN [Suspect]
     Active Substance: INDOMETHACIN
     Dosage: 1 DF, 2X/DAY (1 DOSAGE FORMS, 12 HR)
     Route: 054
     Dates: start: 20170505, end: 20170505
  153. INDOMETHACIN [Suspect]
     Active Substance: INDOMETHACIN
     Dosage: 1 DF, 2X/DAY (1 DOSAGE FORMS, 12 HR)
     Route: 054
     Dates: start: 20180919, end: 20180919
  154. INDOMETHACIN [Suspect]
     Active Substance: INDOMETHACIN
     Dosage: 1 DF, 2X/DAY (1 DOSAGE FORMS, 12 HR)
     Route: 054
     Dates: start: 20190304, end: 20190404
  155. INDOMETHACIN [Suspect]
     Active Substance: INDOMETHACIN
     Dosage: 1 DF, 2X/DAY (1 DOSAGE FORMS, 12 HR)
     Route: 054
     Dates: start: 20200213
  156. INDOMETHACIN [Suspect]
     Active Substance: INDOMETHACIN
     Dosage: 1 DF, BID, 2 EVERY 1 DAYS (1 DOSAGE FORMS, 12 HR)
     Route: 054
  157. INDOMETHACIN [Suspect]
     Active Substance: INDOMETHACIN
     Dosage: 1 DOSAGE FORM Q2HR
     Route: 054
  158. INDOMETHACIN [Suspect]
     Active Substance: INDOMETHACIN
     Dosage: UNK
  159. INDOMETHACIN [Suspect]
     Active Substance: INDOMETHACIN
     Dosage: 1 DF
     Route: 054
  160. INDOMETHACIN [Suspect]
     Active Substance: INDOMETHACIN
     Dosage: 2 DF
     Route: 054
  161. INDOMETHACIN [Suspect]
     Active Substance: INDOMETHACIN
     Dosage: 1 DOSAGE FORM, Q12H
     Route: 054
  162. INDOMETHACIN [Suspect]
     Active Substance: INDOMETHACIN
     Dosage: 1 DOSAGE FORMS
     Route: 054
  163. INDOMETHACIN [Suspect]
     Active Substance: INDOMETHACIN
     Dosage: 1 DOSAGE FORMS
     Route: 054
  164. INDOMETHACIN [Suspect]
     Active Substance: INDOMETHACIN
     Dosage: 1 DOSAGE FORMS
     Route: 054
  165. INDOMETHACIN [Suspect]
     Active Substance: INDOMETHACIN
     Dosage: 1 DOSAGE FORMS
     Route: 054
  166. INDOMETHACIN [Suspect]
     Active Substance: INDOMETHACIN
     Dosage: 1 DOSAGE FORMS
     Route: 054
  167. INDOMETHACIN [Suspect]
     Active Substance: INDOMETHACIN
     Dosage: 1 DOSAGE FORMS
     Route: 054
  168. INDOMETHACIN [Suspect]
     Active Substance: INDOMETHACIN
     Dosage: 1 DOSAGE FORMS
     Route: 054
  169. INDOMETHACIN [Suspect]
     Active Substance: INDOMETHACIN
     Dosage: 1 DOSAGE FORMS
     Route: 054
  170. INDOMETHACIN [Suspect]
     Active Substance: INDOMETHACIN
     Dosage: 1 DOSAGE FORMS
     Route: 054
  171. INDOMETHACIN [Suspect]
     Active Substance: INDOMETHACIN
     Dosage: 1 DOSAGE FORMS
     Route: 054
  172. INDOMETHACIN [Suspect]
     Active Substance: INDOMETHACIN
     Dosage: 1 DOSAGE FORMS
     Route: 054
  173. INDOMETHACIN [Suspect]
     Active Substance: INDOMETHACIN
     Dosage: 1 DOSAGE FORMS
     Route: 054
  174. INDOMETHACIN [Suspect]
     Active Substance: INDOMETHACIN
     Dosage: 1 DOSAGE FORMS
     Route: 054
  175. INDOMETHACIN [Suspect]
     Active Substance: INDOMETHACIN
     Dosage: 1 DOSAGE FORMS
     Route: 054
  176. INDOMETHACIN [Suspect]
     Active Substance: INDOMETHACIN
     Dosage: 1 DOSAGE FORMS
     Route: 054
  177. INDOMETHACIN [Suspect]
     Active Substance: INDOMETHACIN
     Dosage: 1 DOSAGE FORMS
     Route: 054
  178. INDOMETHACIN [Suspect]
     Active Substance: INDOMETHACIN
     Dosage: 1 DOSAGE FORMS
     Route: 054
  179. INDOMETHACIN [Suspect]
     Active Substance: INDOMETHACIN
     Dosage: 1 DOSAGE FORMS
     Route: 054
  180. MOMETASONE FUROATE MONOHYDRATE [Suspect]
     Active Substance: MOMETASONE FUROATE MONOHYDRATE
     Indication: Migraine
     Dosage: 2 DOSAGE FORM, BID
     Route: 055
  181. MOMETASONE FUROATE MONOHYDRATE [Suspect]
     Active Substance: MOMETASONE FUROATE MONOHYDRATE
     Dosage: 2 DOSAGE FORM, BID
     Route: 055
  182. MOMETASONE FUROATE MONOHYDRATE [Suspect]
     Active Substance: MOMETASONE FUROATE MONOHYDRATE
     Dosage: 2 DOSAGE FORM, Q8H
     Route: 065
  183. MOMETASONE FUROATE MONOHYDRATE [Suspect]
     Active Substance: MOMETASONE FUROATE MONOHYDRATE
     Dosage: 2 DOSAGE FORM, TID
     Route: 065
  184. MOMETASONE FUROATE MONOHYDRATE [Suspect]
     Active Substance: MOMETASONE FUROATE MONOHYDRATE
     Dosage: DOSE AND FREQUENCY UNKNOWN
     Route: 065
  185. MOMETASONE FUROATE MONOHYDRATE [Suspect]
     Active Substance: MOMETASONE FUROATE MONOHYDRATE
     Dosage: 10 MILLIGRAM
     Route: 065
  186. MOMETASONE FUROATE MONOHYDRATE [Suspect]
     Active Substance: MOMETASONE FUROATE MONOHYDRATE
     Dosage: 2 DOSAGE FORM
     Route: 065
  187. MOMETASONE FUROATE MONOHYDRATE [Suspect]
     Active Substance: MOMETASONE FUROATE MONOHYDRATE
     Dosage: 2 DOSAGE FORM, BID
     Route: 065
  188. MOMETASONE FUROATE MONOHYDRATE [Suspect]
     Active Substance: MOMETASONE FUROATE MONOHYDRATE
     Dosage: 1 DOSAGE FORM
     Route: 065
  189. MOMETASONE FUROATE MONOHYDRATE [Suspect]
     Active Substance: MOMETASONE FUROATE MONOHYDRATE
     Dosage: 6 DOSAGE FORM
     Route: 065
  190. MOMETASONE FUROATE MONOHYDRATE [Suspect]
     Active Substance: MOMETASONE FUROATE MONOHYDRATE
     Dosage: 6 DOSAGE FORM, TID
     Route: 065
  191. MOMETASONE FUROATE MONOHYDRATE [Suspect]
     Active Substance: MOMETASONE FUROATE MONOHYDRATE
     Dosage: 2 DOSAGE FORM
     Route: 065
  192. RABEPRAZOLE SODIUM [Suspect]
     Active Substance: RABEPRAZOLE SODIUM
     Indication: Migraine
     Dosage: 1 DF, 2X/DAY
     Route: 065
  193. RABEPRAZOLE SODIUM [Suspect]
     Active Substance: RABEPRAZOLE SODIUM
     Dosage: 1 DF, 2X/DAY
     Route: 065
  194. RABEPRAZOLE SODIUM [Suspect]
     Active Substance: RABEPRAZOLE SODIUM
     Dosage: 1 DF, 2X/DAY
     Route: 065
  195. RABEPRAZOLE SODIUM [Suspect]
     Active Substance: RABEPRAZOLE SODIUM
     Dosage: 1 DF, 2X/DAY
     Route: 065
  196. RABEPRAZOLE SODIUM [Suspect]
     Active Substance: RABEPRAZOLE SODIUM
     Dosage: 1 DF, 2X/DAY
     Route: 065
  197. RABEPRAZOLE SODIUM [Suspect]
     Active Substance: RABEPRAZOLE SODIUM
     Dosage: 1 DF, 2X/DAY
     Route: 065
  198. RABEPRAZOLE SODIUM [Suspect]
     Active Substance: RABEPRAZOLE SODIUM
     Dosage: 1 DF, 2X/DAY
     Route: 065
  199. RABEPRAZOLE SODIUM [Suspect]
     Active Substance: RABEPRAZOLE SODIUM
     Dosage: 1 DF, 2X/DAY
     Route: 065
  200. RABEPRAZOLE SODIUM [Suspect]
     Active Substance: RABEPRAZOLE SODIUM
     Dosage: 1 DF, 2X/DAY
     Route: 065
  201. RABEPRAZOLE SODIUM [Suspect]
     Active Substance: RABEPRAZOLE SODIUM
     Dosage: 1 DF, 2X/DAY
     Route: 065
  202. RABEPRAZOLE SODIUM [Suspect]
     Active Substance: RABEPRAZOLE SODIUM
     Dosage: 1 DF, 2X/DAY
     Route: 065
  203. RABEPRAZOLE SODIUM [Suspect]
     Active Substance: RABEPRAZOLE SODIUM
     Dosage: 1 DF, 2X/DAY
     Route: 065
  204. RABEPRAZOLE SODIUM [Suspect]
     Active Substance: RABEPRAZOLE SODIUM
     Dosage: 1 DF, 2X/DAY
     Route: 065
  205. RABEPRAZOLE SODIUM [Suspect]
     Active Substance: RABEPRAZOLE SODIUM
     Dosage: 1 DF, 2X/DAY
     Route: 065
  206. RABEPRAZOLE SODIUM [Suspect]
     Active Substance: RABEPRAZOLE SODIUM
     Dosage: 1 DF, 2X/DAY
     Route: 065
  207. RABEPRAZOLE SODIUM [Suspect]
     Active Substance: RABEPRAZOLE SODIUM
     Dosage: 1 DF, 2X/DAY
     Route: 065
  208. RABEPRAZOLE SODIUM [Suspect]
     Active Substance: RABEPRAZOLE SODIUM
     Dosage: 1 DF, 2X/DAY
     Route: 065
  209. RABEPRAZOLE SODIUM [Suspect]
     Active Substance: RABEPRAZOLE SODIUM
     Dosage: 1 DF, 2X/DAY
     Route: 065
  210. RABEPRAZOLE SODIUM [Suspect]
     Active Substance: RABEPRAZOLE SODIUM
     Dosage: 1 DF, 2X/DAY
     Route: 065
  211. RABEPRAZOLE SODIUM [Suspect]
     Active Substance: RABEPRAZOLE SODIUM
     Dosage: 1 DF, 2X/DAY
     Route: 065
  212. RABEPRAZOLE SODIUM [Suspect]
     Active Substance: RABEPRAZOLE SODIUM
     Dosage: 1 DF, 2X/DAY
     Route: 065
  213. RABEPRAZOLE SODIUM [Suspect]
     Active Substance: RABEPRAZOLE SODIUM
     Dosage: 1 DF, 2X/DAY
     Route: 065
  214. RABEPRAZOLE SODIUM [Suspect]
     Active Substance: RABEPRAZOLE SODIUM
     Dosage: 1 DF, 2X/DAY
     Route: 065
  215. RABEPRAZOLE SODIUM [Suspect]
     Active Substance: RABEPRAZOLE SODIUM
     Dosage: 1 DF, 2X/DAY
     Route: 065
  216. RABEPRAZOLE SODIUM [Suspect]
     Active Substance: RABEPRAZOLE SODIUM
     Dosage: 1 DF, 2X/DAY
     Route: 065
  217. CLOTRIMAZOLE [Suspect]
     Active Substance: CLOTRIMAZOLE
     Indication: Migraine
     Dosage: UNK
     Route: 065
  218. SUMATRIPTAN [Suspect]
     Active Substance: SUMATRIPTAN
     Indication: Migraine
     Dosage: 100 MG
     Route: 065
  219. SUMATRIPTAN [Suspect]
     Active Substance: SUMATRIPTAN
     Dosage: 60 MG
     Route: 065
  220. SUMATRIPTAN [Suspect]
     Active Substance: SUMATRIPTAN
     Dosage: 25 MG
  221. PREDNISONE [Suspect]
     Active Substance: PREDNISONE
     Indication: Migraine
     Dosage: 2 DOSAGE FORM, QD (1 EVERY 1 DAYS)
     Route: 065
  222. PREDNISONE [Suspect]
     Active Substance: PREDNISONE
     Dosage: UNK
     Route: 065
  223. TRIMETHOPRIM [Suspect]
     Active Substance: TRIMETHOPRIM
     Indication: Migraine
     Dosage: 2 DOSAGE FORM, TID
     Route: 065
  224. TRIMETHOPRIM [Suspect]
     Active Substance: TRIMETHOPRIM
     Dosage: 6 DOSAGE FORM, QD
     Route: 065
  225. TRIMETHOPRIM [Suspect]
     Active Substance: TRIMETHOPRIM
     Dosage: 6 DOSAGE FORM
     Route: 065
  226. TRIMETHOPRIM [Suspect]
     Active Substance: TRIMETHOPRIM
     Dosage: UNK
     Route: 048
  227. ZOPICLONE [Suspect]
     Active Substance: ZOPICLONE
     Indication: Migraine
     Dosage: 1 DOSAGE FORM
     Route: 065
  228. ZOPICLONE [Suspect]
     Active Substance: ZOPICLONE
     Dosage: 5 MG
     Route: 065
  229. ZOPICLONE [Suspect]
     Active Substance: ZOPICLONE
     Dosage: 50 MILLIGRAM
     Route: 065
  230. ZOPICLONE [Suspect]
     Active Substance: ZOPICLONE
     Dosage: 1 DF, 1X/DAY
     Route: 065
     Dates: start: 20120512, end: 20120707
  231. ZOPICLONE [Suspect]
     Active Substance: ZOPICLONE
     Dosage: 1 DF, 1 EVERY 1 DAYS (1 DOSAGE FORMS, 1 D)
     Route: 065
     Dates: start: 20121017, end: 20121130
  232. ZOPICLONE [Suspect]
     Active Substance: ZOPICLONE
     Dosage: 1 DF, 1X/DAY
     Route: 065
     Dates: start: 20130102, end: 20130225
  233. ZOPICLONE [Suspect]
     Active Substance: ZOPICLONE
     Dosage: 1 DF, 1X/DAY
     Route: 065
     Dates: start: 20130306, end: 20130411
  234. ZOPICLONE [Suspect]
     Active Substance: ZOPICLONE
     Dosage: 1 DF, 1X/DAY
     Route: 065
     Dates: start: 20130731, end: 20130920
  235. ZOPICLONE [Suspect]
     Active Substance: ZOPICLONE
     Dosage: 1 DF, 1X/DAY
     Route: 065
     Dates: start: 20130925, end: 20131130
  236. ZOPICLONE [Suspect]
     Active Substance: ZOPICLONE
     Dosage: 1 DF, 1X/DAY
     Route: 065
  237. ZOPICLONE [Suspect]
     Active Substance: ZOPICLONE
     Dosage: 1 DF, 1X/DAY
     Route: 065
     Dates: start: 20131224, end: 20131224
  238. ZOPICLONE [Suspect]
     Active Substance: ZOPICLONE
     Dosage: 1 DF, 1X/DAY
     Route: 065
     Dates: start: 20140108, end: 20140310
  239. ZOPICLONE [Suspect]
     Active Substance: ZOPICLONE
     Dosage: 1 DF, 1X/DAY
     Route: 065
     Dates: start: 20140325, end: 20140521
  240. ZOPICLONE [Suspect]
     Active Substance: ZOPICLONE
     Dosage: 1 DF, 1X/DAY
     Route: 065
     Dates: start: 20140612, end: 20140728
  241. ZOPICLONE [Suspect]
     Active Substance: ZOPICLONE
     Dosage: 1 DF, 1X/DAY
     Route: 065
     Dates: start: 20140813, end: 20141010
  242. ZOPICLONE [Suspect]
     Active Substance: ZOPICLONE
     Dosage: 1 DF, 1X/DAY
     Route: 065
     Dates: start: 20141103, end: 20150102
  243. ZOPICLONE [Suspect]
     Active Substance: ZOPICLONE
     Dosage: 1 DF, 1X/DAY
     Route: 065
     Dates: start: 20150113, end: 20151207
  244. ZOPICLONE [Suspect]
     Active Substance: ZOPICLONE
     Dosage: 1 DF, 1X/DAY
     Route: 065
     Dates: start: 20150121, end: 20150424
  245. ZOPICLONE [Suspect]
     Active Substance: ZOPICLONE
     Dosage: 1 DF, 1X/DAY
     Route: 065
     Dates: start: 20150506, end: 20150703
  246. ZOPICLONE [Suspect]
     Active Substance: ZOPICLONE
     Dosage: 1 DF, 1X/DAY
     Route: 065
     Dates: start: 20151216, end: 20160226
  247. ZOPICLONE [Suspect]
     Active Substance: ZOPICLONE
     Dosage: 1 DF, 1X/DAY
     Route: 065
     Dates: start: 20160323, end: 20160323
  248. ZOPICLONE [Suspect]
     Active Substance: ZOPICLONE
     Dosage: 1 DF, 1X/DAY
     Route: 065
     Dates: start: 20160418, end: 20160418
  249. ZOPICLONE [Suspect]
     Active Substance: ZOPICLONE
     Dosage: 1 DF, 1X/DAY
     Route: 065
     Dates: start: 20160609, end: 20161027
  250. ZOPICLONE [Suspect]
     Active Substance: ZOPICLONE
     Dosage: 1 DF, 1X/DAY
     Route: 065
     Dates: start: 20161116, end: 20170116
  251. ZOPICLONE [Suspect]
     Active Substance: ZOPICLONE
     Dosage: 1 DF, 1X/DAY
     Route: 065
     Dates: start: 20170118, end: 20170410
  252. ZOPICLONE [Suspect]
     Active Substance: ZOPICLONE
     Dosage: 1 DF, 1X/DAY
     Route: 065
  253. ZOPICLONE [Suspect]
     Active Substance: ZOPICLONE
     Dosage: 1 DF, 1X/DAY
     Route: 065
  254. ZOPICLONE [Suspect]
     Active Substance: ZOPICLONE
     Dosage: 1 DF, 1X/DAY
     Route: 065
  255. ZOPICLONE [Suspect]
     Active Substance: ZOPICLONE
     Dosage: 1 DF, 1X/DAY
     Route: 065
  256. ZOPICLONE [Suspect]
     Active Substance: ZOPICLONE
     Dosage: 1 DF, 1X/DAY
     Route: 065
  257. ZOPICLONE [Suspect]
     Active Substance: ZOPICLONE
     Dosage: 1 DF, 1X/DAY
     Route: 065
  258. ZOPICLONE [Suspect]
     Active Substance: ZOPICLONE
     Dosage: 1 DF, 1X/DAY
     Route: 065
  259. ZOPICLONE [Suspect]
     Active Substance: ZOPICLONE
     Dosage: 1 DF, 1X/DAY
     Route: 065
  260. ZOPICLONE [Suspect]
     Active Substance: ZOPICLONE
     Dosage: 1 DF, 1X/DAY
     Route: 065
  261. ZOPICLONE [Suspect]
     Active Substance: ZOPICLONE
     Dosage: 1 DF, 1X/DAY
     Route: 065
  262. ZOPICLONE [Suspect]
     Active Substance: ZOPICLONE
     Dosage: 1 DF, 1X/DAY
     Route: 065
  263. ZOPICLONE [Suspect]
     Active Substance: ZOPICLONE
     Dosage: 1 DF, 1X/DAY
     Route: 065
  264. ZOPICLONE [Suspect]
     Active Substance: ZOPICLONE
     Dosage: 1 DF, 1X/DAY
     Route: 065
  265. ZOPICLONE [Suspect]
     Active Substance: ZOPICLONE
     Dosage: 1 DF, 1X/DAY
     Route: 065
  266. ZOPICLONE [Suspect]
     Active Substance: ZOPICLONE
     Dosage: 1 DF, 1X/DAY
     Route: 065
  267. ZOPICLONE [Suspect]
     Active Substance: ZOPICLONE
     Dosage: 1 DF, 1X/DAY
     Route: 065
  268. ZOPICLONE [Suspect]
     Active Substance: ZOPICLONE
     Dosage: 1 DF, 1X/DAY
     Route: 065
  269. ZOPICLONE [Suspect]
     Active Substance: ZOPICLONE
     Dosage: 1 DF, 1X/DAY
     Route: 065
  270. ZOPICLONE [Suspect]
     Active Substance: ZOPICLONE
     Dosage: 1 DF, 1X/DAY
     Route: 065
  271. ZOPICLONE [Suspect]
     Active Substance: ZOPICLONE
     Dosage: 1 DF, 1X/DAY
     Route: 065
  272. ZOPICLONE [Suspect]
     Active Substance: ZOPICLONE
     Dosage: 1 DF, 1X/DAY
     Route: 065
  273. ZOPICLONE [Suspect]
     Active Substance: ZOPICLONE
     Dosage: 1 DF, 1X/DAY
     Route: 065
  274. ZOPICLONE [Suspect]
     Active Substance: ZOPICLONE
     Dosage: 1 DF, 1X/DAY
     Route: 065
  275. ZOPICLONE [Suspect]
     Active Substance: ZOPICLONE
     Dosage: 1 DF, 1X/DAY
     Route: 065
  276. ZOPICLONE [Suspect]
     Active Substance: ZOPICLONE
     Dosage: 1 DF, 1X/DAY
     Route: 065
  277. ZOPICLONE [Suspect]
     Active Substance: ZOPICLONE
     Dosage: 1 DF, 1X/DAY
     Route: 065
  278. ZOPICLONE [Suspect]
     Active Substance: ZOPICLONE
     Dosage: 1 DF, 1X/DAY
     Route: 065
  279. ZOPICLONE [Suspect]
     Active Substance: ZOPICLONE
     Dosage: 5 MILLIGRAM(FREQUENCY UNKNOWN)
     Route: 065
  280. ZOPICLONE [Suspect]
     Active Substance: ZOPICLONE
     Dosage: 1 DOSAGE FORM(FREQUENCY UNKNOWN)
     Route: 065
  281. CODEINE SULFATE [Suspect]
     Active Substance: CODEINE SULFATE
     Indication: Migraine
     Dosage: UNK
     Route: 065
  282. CODEINE SULFATE [Suspect]
     Active Substance: CODEINE SULFATE
     Dosage: 40 MILLIGRAM
     Route: 065
  283. CLOTRIMAZOLE\FLUCONAZOLE [Suspect]
     Active Substance: CLOTRIMAZOLE\FLUCONAZOLE
     Dosage: 1 DOSAGE FORM
     Route: 065
  284. CLOTRIMAZOLE\FLUCONAZOLE [Suspect]
     Active Substance: CLOTRIMAZOLE\FLUCONAZOLE
     Dosage: UNK
     Route: 065
  285. RABEPRAZOLE [Suspect]
     Active Substance: RABEPRAZOLE
     Indication: Migraine
     Dosage: 1 DOSAGE FORM, BID (1 DOSAGE FORM ONCE EVERY 12
     Route: 065
     Dates: start: 20120515, end: 20120614
  286. RABEPRAZOLE [Suspect]
     Active Substance: RABEPRAZOLE
     Dosage: 10 MILLIGRAM
     Route: 065
  287. RABEPRAZOLE [Suspect]
     Active Substance: RABEPRAZOLE
     Dosage: 1 DOSAGE FORM
     Route: 065
  288. RABEPRAZOLE [Suspect]
     Active Substance: RABEPRAZOLE
     Dosage: 2 DOSAGE FORM, BID
     Route: 065
  289. RABEPRAZOLE [Suspect]
     Active Substance: RABEPRAZOLE
     Dosage: 1 DOSAGE FORM, BID
     Route: 048
     Dates: start: 20120731, end: 20120922
  290. RABEPRAZOLE [Suspect]
     Active Substance: RABEPRAZOLE
     Dosage: 1 MG
     Route: 065
  291. RABEPRAZOLE [Suspect]
     Active Substance: RABEPRAZOLE
     Dosage: UNK
     Route: 065
  292. RABEPRAZOLE [Suspect]
     Active Substance: RABEPRAZOLE
     Dosage: 1 DF, 2X/DAY
     Route: 048
     Dates: start: 20121017, end: 20121108
  293. RABEPRAZOLE [Suspect]
     Active Substance: RABEPRAZOLE
     Dosage: 1 DF, 2X/DAY
     Route: 048
     Dates: start: 20121017, end: 20121108
  294. RABEPRAZOLE [Suspect]
     Active Substance: RABEPRAZOLE
     Dosage: 1 DF, 2X/DAY
     Route: 048
     Dates: start: 20130102, end: 20130129
  295. RABEPRAZOLE [Suspect]
     Active Substance: RABEPRAZOLE
     Dosage: 1 DF, 2X/DAY
     Route: 048
     Dates: start: 20130306, end: 20130311
  296. RABEPRAZOLE [Suspect]
     Active Substance: RABEPRAZOLE
     Dosage: 1 DF, 2X/DAY
     Route: 048
     Dates: start: 20130430, end: 20130715
  297. RABEPRAZOLE [Suspect]
     Active Substance: RABEPRAZOLE
     Dosage: 1 DF, 2X/DAY
     Route: 048
     Dates: start: 20130731, end: 20130827
  298. RABEPRAZOLE [Suspect]
     Active Substance: RABEPRAZOLE
     Dosage: 1 DF, 2X/DAY
     Route: 048
     Dates: start: 20130925, end: 20131130
  299. RABEPRAZOLE [Suspect]
     Active Substance: RABEPRAZOLE
     Dosage: 1 DF, 2X/DAY
     Route: 048
     Dates: start: 20131224, end: 20131224
  300. RABEPRAZOLE [Suspect]
     Active Substance: RABEPRAZOLE
     Dosage: 1 DF, 2X/DAY
     Route: 048
     Dates: start: 20140108, end: 20140310
  301. RABEPRAZOLE [Suspect]
     Active Substance: RABEPRAZOLE
     Dosage: 1 DF, 2X/DAY
     Route: 048
     Dates: start: 20140205, end: 20140225
  302. RABEPRAZOLE [Suspect]
     Active Substance: RABEPRAZOLE
     Dosage: 1 DF, 2X/DAY
     Route: 048
     Dates: start: 20170505, end: 20170921
  303. RABEPRAZOLE [Suspect]
     Active Substance: RABEPRAZOLE
     Dosage: 1 DF, 2X/DAY
     Route: 048
     Dates: start: 20171018, end: 20180303
  304. RABEPRAZOLE [Suspect]
     Active Substance: RABEPRAZOLE
     Dosage: 1 DF, 2X/DAY
     Route: 048
     Dates: start: 20180316, end: 20180821
  305. RABEPRAZOLE [Suspect]
     Active Substance: RABEPRAZOLE
     Dosage: 1 DF, 2X/DAY
     Route: 048
     Dates: start: 20180919, end: 20190208
  306. RABEPRAZOLE [Suspect]
     Active Substance: RABEPRAZOLE
     Dosage: 1 DF, 2X/DAY
     Route: 048
     Dates: start: 20190304, end: 20190725
  307. RABEPRAZOLE [Suspect]
     Active Substance: RABEPRAZOLE
     Dosage: 1 DF, 2X/DAY
     Route: 048
     Dates: start: 20190816, end: 20200109
  308. RABEPRAZOLE [Suspect]
     Active Substance: RABEPRAZOLE
     Dosage: 1 DF, 2X/DAY
     Route: 048
     Dates: start: 20200213
  309. RABEPRAZOLE [Suspect]
     Active Substance: RABEPRAZOLE
     Dosage: 1 DF, 2X/DAY
     Route: 065
  310. RABEPRAZOLE [Suspect]
     Active Substance: RABEPRAZOLE
     Dosage: 1 DF, 2X/DAY
     Route: 065
  311. RABEPRAZOLE [Suspect]
     Active Substance: RABEPRAZOLE
     Dosage: 1 DF, 2X/DAY
     Route: 065
  312. RABEPRAZOLE [Suspect]
     Active Substance: RABEPRAZOLE
     Dosage: 1 DF, 2X/DAY
     Route: 065
  313. RABEPRAZOLE [Suspect]
     Active Substance: RABEPRAZOLE
     Dosage: 1 DF, 2X/DAY
     Route: 065
  314. RABEPRAZOLE [Suspect]
     Active Substance: RABEPRAZOLE
     Dosage: 1 DF, 2X/DAY
     Route: 065
  315. RABEPRAZOLE [Suspect]
     Active Substance: RABEPRAZOLE
     Dosage: 1 DF, 2X/DAY
     Route: 065
  316. RABEPRAZOLE [Suspect]
     Active Substance: RABEPRAZOLE
     Dosage: 1 DF, BID,2 EVERY 1 DAYS
     Route: 065
  317. RABEPRAZOLE [Suspect]
     Active Substance: RABEPRAZOLE
     Dosage: 2 DF, 1X/DAY (2 DOSAGE FORMS, 1 EVERY 1 DAY
     Route: 065
  318. MAXALT [Suspect]
     Active Substance: RIZATRIPTAN BENZOATE
     Indication: Migraine
     Dosage: UNK
     Route: 065
  319. MAXALT [Suspect]
     Active Substance: RIZATRIPTAN BENZOATE
     Dosage: 10 MILLIGRAM, QD
     Route: 065
  320. CIPROFLOXACIN LACTATE [Suspect]
     Active Substance: CIPROFLOXACIN LACTATE
     Indication: Migraine
     Dosage: 500 MILLIGRAM
     Route: 065
  321. CIPROFLOXACIN LACTATE [Suspect]
     Active Substance: CIPROFLOXACIN LACTATE
     Dosage: 1 DOSAGE FORM
     Route: 065
  322. CIPROFLOXACIN LACTATE [Suspect]
     Active Substance: CIPROFLOXACIN LACTATE
     Dosage: 1 DOSAGE FORM, BID
     Route: 065
  323. CIPROFLOXACIN LACTATE [Suspect]
     Active Substance: CIPROFLOXACIN LACTATE
     Dosage: 2 DOSAGE FORM, BID
     Route: 065
  324. CIPROFLOXACIN LACTATE [Suspect]
     Active Substance: CIPROFLOXACIN LACTATE
     Dosage: 500 MILLIGRAM
     Route: 065
  325. CIPROFLOXACIN LACTATE [Suspect]
     Active Substance: CIPROFLOXACIN LACTATE
     Dosage: 1 DF, 2X/DAY (EVERY 12HRS)
     Route: 065
     Dates: start: 20170930, end: 20170930
  326. ACETAMINOPHEN [Suspect]
     Active Substance: ACETAMINOPHEN
     Indication: Arthritis
     Dosage: 10 MILLIGRAM
     Route: 048
  327. ACETAMINOPHEN [Suspect]
     Active Substance: ACETAMINOPHEN
     Dosage: UNK
     Route: 065
  328. CYMBALTA [Suspect]
     Active Substance: DULOXETINE HYDROCHLORIDE
     Dosage: 2 DOSAGE FORM, QD (1 EVERY 1 DAYS)
     Route: 065
  329. CYMBALTA [Suspect]
     Active Substance: DULOXETINE HYDROCHLORIDE
     Dosage: 1 DOSAGE FORM, QD (1 EVERY 1 DAYS)
     Route: 065
  330. CYMBALTA [Suspect]
     Active Substance: DULOXETINE HYDROCHLORIDE
     Dosage: 2 DOSAGE FORM
     Route: 065
  331. CYMBALTA [Suspect]
     Active Substance: DULOXETINE HYDROCHLORIDE
     Dosage: 1 DOSAGE FORM
     Route: 065
  332. CYMBALTA [Suspect]
     Active Substance: DULOXETINE HYDROCHLORIDE
     Dosage: 60 MG
     Route: 048
  333. CYMBALTA [Suspect]
     Active Substance: DULOXETINE HYDROCHLORIDE
     Dosage: UNK, DAILY
  334. CYMBALTA [Suspect]
     Active Substance: DULOXETINE HYDROCHLORIDE
     Dosage: UNK
  335. TRAMADOL HYDROCHLORIDE [Suspect]
     Active Substance: TRAMADOL HYDROCHLORIDE
     Indication: Migraine
     Dosage: UNK
     Route: 048
  336. ACETAMINOPHEN\TRAMADOL HYDROCHLORIDE [Suspect]
     Active Substance: ACETAMINOPHEN\TRAMADOL HYDROCHLORIDE
     Dosage: UNK
     Route: 065
  337. ACETAMINOPHEN\DIPHENHYDRAMINE HYDROCHLORIDE [Suspect]
     Active Substance: ACETAMINOPHEN\DIPHENHYDRAMINE HYDROCHLORIDE
     Dosage: UNK
     Route: 065
  338. AZITHROMYCIN DIHYDRATE [Suspect]
     Active Substance: AZITHROMYCIN DIHYDRATE
     Dosage: 500 MILLIGRAM
     Route: 065
  339. AZITHROMYCIN DIHYDRATE [Suspect]
     Active Substance: AZITHROMYCIN DIHYDRATE
     Dosage: UNK, 4 YEARS
  340. ACETAMINOPHEN\METOCLOPRAMIDE HYDROCHLORIDE [Suspect]
     Active Substance: ACETAMINOPHEN\METOCLOPRAMIDE HYDROCHLORIDE
     Dosage: 5 MILLIGRAM
     Route: 065
  341. ZOLMITRIPTAN [Suspect]
     Active Substance: ZOLMITRIPTAN
     Indication: Migraine
     Dosage: UNK
     Route: 048
  342. ACETAMINOPHEN\CODEINE PHOSPHATE [Suspect]
     Active Substance: ACETAMINOPHEN\CODEINE PHOSPHATE
     Dosage: UNK
     Route: 065
  343. AZITHROMYCIN ANHYDROUS [Suspect]
     Active Substance: AZITHROMYCIN ANHYDROUS
     Indication: Migraine
     Dosage: 500 MILLIGRAM
     Route: 065
  344. ZESTRIL [Suspect]
     Active Substance: LISINOPRIL
     Dosage: UNK, QD
     Route: 048
  345. ZESTRIL [Suspect]
     Active Substance: LISINOPRIL
     Dosage: UNK
     Route: 065
  346. LISINOPRIL [Suspect]
     Active Substance: LISINOPRIL
     Dosage: 1 DOSAGE FORM, QD
     Route: 065
  347. LISINOPRIL [Suspect]
     Active Substance: LISINOPRIL
     Dosage: 1 DOSAGE FORM, QD
     Route: 065
  348. LISINOPRIL [Suspect]
     Active Substance: LISINOPRIL
     Dosage: 2  DOSAGE FORM, QD
     Route: 065
  349. LISINOPRIL [Suspect]
     Active Substance: LISINOPRIL
     Dosage: 2 DF, 1X/DAY
     Route: 065
  350. LISINOPRIL [Suspect]
     Active Substance: LISINOPRIL
     Dosage: 1 DOSAGE FORM
     Route: 065
  351. LISINOPRIL [Suspect]
     Active Substance: LISINOPRIL
     Dosage: UNK
  352. SULFAMETHOXAZOLE AND TRIMETHOPRIM [Suspect]
     Active Substance: SULFAMETHOXAZOLE\TRIMETHOPRIM
     Dosage: 2 DOSAGE FORM, QD
     Route: 065
  353. SULFAMETHOXAZOLE AND TRIMETHOPRIM [Suspect]
     Active Substance: SULFAMETHOXAZOLE\TRIMETHOPRIM
     Dosage: 100 MILLIGRAM
     Route: 065
  354. SULFAMETHOXAZOLE AND TRIMETHOPRIM [Suspect]
     Active Substance: SULFAMETHOXAZOLE\TRIMETHOPRIM
     Dosage: 1 DOSAGE FORM, QD
     Route: 065
  355. NEXIUM 24HR [Suspect]
     Active Substance: ESOMEPRAZOLE MAGNESIUM
     Dosage: UNK
     Route: 065
  356. PREDNISOLONE [Suspect]
     Active Substance: PREDNISOLONE
     Dosage: UNK
     Route: 065
  357. PROPRANOLOL HYDROCHLORIDE [Suspect]
     Active Substance: PROPRANOLOL HYDROCHLORIDE
  358. FROVA [Suspect]
     Active Substance: FROVATRIPTAN SUCCINATE
     Dosage: 1 DOSAGE FORM, QD
     Route: 065
  359. FROVA [Suspect]
     Active Substance: FROVATRIPTAN SUCCINATE
     Dosage: 1 DF, 1X/DAY
     Route: 065
  360. FROVA [Suspect]
     Active Substance: FROVATRIPTAN SUCCINATE
     Dosage: 1 DOSAGE FORM, QD
     Route: 065
  361. BUTYLSCOPOLAMINE [Suspect]
     Active Substance: BUTYLSCOPOLAMINE
     Dosage: 10 MG
     Route: 065
  362. DULOXETINE [Suspect]
     Active Substance: DULOXETINE
     Indication: Migraine
     Dosage: 600 MG
     Route: 065
  363. ALBUTEROL [Suspect]
     Active Substance: ALBUTEROL
     Indication: Migraine
     Dosage: 4 DOSAGE FORM
  364. METRONIDAZOLE [Concomitant]
     Active Substance: METRONIDAZOLE
     Dosage: 5 MG
     Route: 065
  365. METRONIDAZOLE [Concomitant]
     Active Substance: METRONIDAZOLE
     Dosage: UNK
     Route: 065
  366. APO-SALVENT CFC FREE [Concomitant]
     Dosage: 1 DOSAGE FORM, QID
     Route: 065
  367. APO-SALVENT CFC FREE [Concomitant]
     Dosage: 1 DF
     Route: 065
  368. CEFUROXIME AXETIL [Concomitant]
     Active Substance: CEFUROXIME AXETIL
     Dosage: 1 DOSAGE FORM, BID
     Route: 065
  369. CEFUROXIME AXETIL [Concomitant]
     Active Substance: CEFUROXIME AXETIL
     Dosage: 1 DOSAGE FORM, QD
     Route: 065
  370. CEFUROXIME AXETIL [Concomitant]
     Active Substance: CEFUROXIME AXETIL
     Dosage: 1 DOSAGE FORM, TID
  371. CEFUROXIME AXETIL [Concomitant]
     Active Substance: CEFUROXIME AXETIL
     Dosage: 1 DOSAGE FORM
     Route: 065
  372. CEFUROXIME AXETIL [Concomitant]
     Active Substance: CEFUROXIME AXETIL
     Dosage: 1 DF
     Route: 065
  373. CEFUROXIME AXETIL [Concomitant]
     Active Substance: CEFUROXIME AXETIL
     Dosage: 1 DF
     Route: 065
  374. CEFUROXIME AXETIL [Concomitant]
     Active Substance: CEFUROXIME AXETIL
     Dosage: 1 DOSAGE FORM, BID
     Route: 065
  375. CEFUROXIME AXETIL [Concomitant]
     Active Substance: CEFUROXIME AXETIL
     Dosage: 1 DOSAGE FORM
     Route: 065
  376. CEFUROXIME AXETIL [Concomitant]
     Active Substance: CEFUROXIME AXETIL
     Dosage: 1 DF, 2X/DAY
     Route: 065
  377. CEFUROXIME AXETIL [Concomitant]
     Active Substance: CEFUROXIME AXETIL
     Dosage: UNK
     Route: 065
  378. CEFUROXIME AXETIL [Concomitant]
     Active Substance: CEFUROXIME AXETIL
     Dosage: 1 DOSAGE FORM
     Route: 065
  379. CEFUROXIME AXETIL [Concomitant]
     Active Substance: CEFUROXIME AXETIL
     Dosage: 2 DOSAGE FORM
     Route: 065
  380. CEFUROXIME AXETIL [Concomitant]
     Active Substance: CEFUROXIME AXETIL
     Dosage: 3 DOSAGE FORM, QD
     Route: 065
  381. CEFUROXIME AXETIL [Concomitant]
     Active Substance: CEFUROXIME AXETIL
     Dosage: 1 DOSAGE FORM, Q12H
     Route: 065
  382. CEFUROXIME AXETIL [Concomitant]
     Active Substance: CEFUROXIME AXETIL
     Dosage: 2 DOSAGE FORM, QD
     Route: 065
  383. CEPHALEXIN [Concomitant]
     Active Substance: CEPHALEXIN
     Dosage: 1 DOSAGE FORM, TID
     Route: 065
  384. CEPHALEXIN [Concomitant]
     Active Substance: CEPHALEXIN
     Dosage: 1 DF, 1X/DAY
     Route: 065
  385. CEPHALEXIN [Concomitant]
     Active Substance: CEPHALEXIN
     Dosage: UNK
     Route: 065
  386. CEPHALEXIN [Concomitant]
     Active Substance: CEPHALEXIN
     Dosage: 3 DOSAGE FORM
     Route: 065
  387. CEPHALEXIN [Concomitant]
     Active Substance: CEPHALEXIN
     Dosage: 3 DOSAGE FORM, QD
     Route: 065
  388. CEPHALEXIN [Concomitant]
     Active Substance: CEPHALEXIN
     Dosage: UNK
     Route: 065
  389. MACROBID [Concomitant]
     Active Substance: NITROFURANTOIN\NITROFURANTOIN MONOHYDRATE
     Dosage: 1 DOSAGE FORM, BID
     Route: 065
  390. MACROBID [Concomitant]
     Active Substance: NITROFURANTOIN\NITROFURANTOIN MONOHYDRATE
     Dosage: 100 MILLIGRAM
     Route: 065
  391. MACROBID [Concomitant]
     Active Substance: NITROFURANTOIN\NITROFURANTOIN MONOHYDRATE
     Dosage: 1 DOSAGE FORM
     Route: 065
  392. MACROBID [Concomitant]
     Active Substance: NITROFURANTOIN\NITROFURANTOIN MONOHYDRATE
     Dosage: 100 MILLIGRAM
     Route: 065
  393. MACROBID [Concomitant]
     Active Substance: NITROFURANTOIN\NITROFURANTOIN MONOHYDRATE
     Dosage: 1 DOSAGE FORM, QD
     Route: 065
  394. MACROBID [Concomitant]
     Active Substance: NITROFURANTOIN\NITROFURANTOIN MONOHYDRATE
     Dosage: UNK
  395. NAPROXEN [Concomitant]
     Active Substance: NAPROXEN
     Indication: Headache
     Dosage: 1 DOSAGE FORM, BID
     Route: 065
  396. NAPROXEN [Concomitant]
     Active Substance: NAPROXEN
     Dosage: 1 DOSAGE FORM, TID
     Route: 065
  397. NAPROXEN [Concomitant]
     Active Substance: NAPROXEN
     Dosage: 1 DF, 1X/DAY
     Route: 065
  398. NAPROXEN [Concomitant]
     Active Substance: NAPROXEN
     Dosage: 1 DOSAGE FORM, Q8H
     Route: 065
  399. NAPROXEN [Concomitant]
     Active Substance: NAPROXEN
     Dosage: UNK
     Route: 065
  400. OSELTAMIVIR [Concomitant]
     Active Substance: OSELTAMIVIR
     Dosage: 1 DOSAGE FORM Q12HR
     Route: 065
  401. OSELTAMIVIR [Concomitant]
     Active Substance: OSELTAMIVIR
     Dosage: 1 DF, 1X/DAY
     Route: 065
  402. OSELTAMIVIR [Concomitant]
     Active Substance: OSELTAMIVIR
     Dosage: 1 DOSAGE FORM, BID
     Route: 065
  403. OSELTAMIVIR [Concomitant]
     Active Substance: OSELTAMIVIR
     Dosage: UNK
     Route: 065
  404. OSELTAMIVIR [Concomitant]
     Active Substance: OSELTAMIVIR
     Dosage: 1 DOSAGE FORM, TID
     Route: 065
  405. STATEX [Concomitant]
     Dosage: 1 DF, 1X/DAY
     Route: 065
  406. STATEX [Concomitant]
     Dosage: 1 DF, 1X/DAY
     Route: 065
  407. STATEX [Concomitant]
     Dosage: 1 DF, 1X/DAY
     Route: 065
  408. STATEX [Concomitant]
     Dosage: 1 DF, 1X/DAY
     Route: 065
  409. STATEX [Concomitant]
     Dosage: 1 DF, 1X/DAY
     Route: 065
  410. STATEX [Concomitant]
     Dosage: 1 DF, 1X/DAY
     Route: 065
  411. STATEX [Concomitant]
     Dosage: 1 DF, 1X/DAY
     Route: 065
  412. STATEX [Concomitant]
     Dosage: 1 DF, 1X/DAY
     Route: 065
  413. STATEX [Concomitant]
     Dosage: UNK
     Route: 065
  414. ACETAMINOPHEN\CAFFEINE\CODEINE [Concomitant]
     Active Substance: ACETAMINOPHEN\CAFFEINE\CODEINE
     Dosage: UNK UNK, 4X/DAY
     Route: 065
  415. ACETAMINOPHEN\CAFFEINE\CODEINE [Concomitant]
     Active Substance: ACETAMINOPHEN\CAFFEINE\CODEINE
     Dosage: UNK UNK, 4X/DAY
     Route: 065
  416. ACETAMINOPHEN\CAFFEINE\CODEINE [Concomitant]
     Active Substance: ACETAMINOPHEN\CAFFEINE\CODEINE
     Dosage: UNK UNK, 4X/DAY
     Route: 065
  417. ACETAMINOPHEN\CAFFEINE\CODEINE [Concomitant]
     Active Substance: ACETAMINOPHEN\CAFFEINE\CODEINE
     Dosage: UNK UNK, 4X/DAY
     Route: 065
  418. ACETAMINOPHEN\CAFFEINE\CODEINE [Concomitant]
     Active Substance: ACETAMINOPHEN\CAFFEINE\CODEINE
     Dosage: UNK UNK, 4X/DAY
     Route: 065
  419. ACETAMINOPHEN\CAFFEINE\CODEINE [Concomitant]
     Active Substance: ACETAMINOPHEN\CAFFEINE\CODEINE
     Dosage: UNK UNK, 4X/DAY
     Route: 065
  420. ACETAMINOPHEN\CAFFEINE\CODEINE [Concomitant]
     Active Substance: ACETAMINOPHEN\CAFFEINE\CODEINE
     Dosage: UNK UNK, 4X/DAY
     Route: 065
  421. ACETAMINOPHEN\CAFFEINE\CODEINE [Concomitant]
     Active Substance: ACETAMINOPHEN\CAFFEINE\CODEINE
     Dosage: UNK UNK, 4X/DAY
     Route: 065
  422. ACETAMINOPHEN\CAFFEINE\CODEINE [Concomitant]
     Active Substance: ACETAMINOPHEN\CAFFEINE\CODEINE
     Dosage: UNK UNK, 4X/DAY
     Route: 065
  423. ACETAMINOPHEN\CAFFEINE\CODEINE [Concomitant]
     Active Substance: ACETAMINOPHEN\CAFFEINE\CODEINE
     Dosage: UNK UNK, 4X/DAY
     Route: 065
  424. ACETAMINOPHEN\CAFFEINE\CODEINE [Concomitant]
     Active Substance: ACETAMINOPHEN\CAFFEINE\CODEINE
     Dosage: UNK UNK, 4X/DAY
     Route: 065
  425. ACETAMINOPHEN\CAFFEINE\CODEINE [Concomitant]
     Active Substance: ACETAMINOPHEN\CAFFEINE\CODEINE
     Dosage: UNK UNK, 4X/DAY
     Route: 065
  426. ACETAMINOPHEN\CAFFEINE\CODEINE [Concomitant]
     Active Substance: ACETAMINOPHEN\CAFFEINE\CODEINE
     Dosage: UNK UNK, 4X/DAY
     Route: 065
  427. ACETAMINOPHEN\CAFFEINE\CODEINE [Concomitant]
     Active Substance: ACETAMINOPHEN\CAFFEINE\CODEINE
     Dosage: UNK UNK, 4X/DAY
     Route: 065
  428. ACETAMINOPHEN\CAFFEINE\CODEINE [Concomitant]
     Active Substance: ACETAMINOPHEN\CAFFEINE\CODEINE
     Dosage: UNK UNK, 4X/DAY
     Route: 065
  429. ACETAMINOPHEN\CAFFEINE\CODEINE [Concomitant]
     Active Substance: ACETAMINOPHEN\CAFFEINE\CODEINE
     Dosage: UNK UNK, 4X/DAY
     Route: 065
  430. ACETAMINOPHEN\CAFFEINE\CODEINE [Concomitant]
     Active Substance: ACETAMINOPHEN\CAFFEINE\CODEINE
     Dosage: UNK UNK, 4X/DAY
     Route: 065
  431. ACETAMINOPHEN\CAFFEINE\CODEINE [Concomitant]
     Active Substance: ACETAMINOPHEN\CAFFEINE\CODEINE
     Dosage: UNK UNK, 4X/DAY
     Route: 065
  432. ACETAMINOPHEN\CAFFEINE\CODEINE [Concomitant]
     Active Substance: ACETAMINOPHEN\CAFFEINE\CODEINE
     Dosage: UNK UNK, 4X/DAY
     Route: 065
  433. ACETAMINOPHEN\CAFFEINE\CODEINE [Concomitant]
     Active Substance: ACETAMINOPHEN\CAFFEINE\CODEINE
     Dosage: UNK UNK, 4X/DAY
     Route: 065
  434. ACETAMINOPHEN\CAFFEINE\CODEINE [Concomitant]
     Active Substance: ACETAMINOPHEN\CAFFEINE\CODEINE
     Dosage: UNK UNK, 4X/DAY
     Route: 065
  435. ACETAMINOPHEN\CAFFEINE\CODEINE [Concomitant]
     Active Substance: ACETAMINOPHEN\CAFFEINE\CODEINE
     Dosage: UNK UNK, 4X/DAY
     Route: 065
  436. ACETAMINOPHEN\CAFFEINE\CODEINE [Concomitant]
     Active Substance: ACETAMINOPHEN\CAFFEINE\CODEINE
     Dosage: UNK UNK, 4X/DAY
     Route: 065
  437. ACETAMINOPHEN\CAFFEINE\CODEINE [Concomitant]
     Active Substance: ACETAMINOPHEN\CAFFEINE\CODEINE
     Dosage: UNK UNK, 4X/DAY
     Route: 065
  438. ACETAMINOPHEN\CAFFEINE\CODEINE [Concomitant]
     Active Substance: ACETAMINOPHEN\CAFFEINE\CODEINE
     Dosage: UNK UNK, 4X/DAY
     Route: 065
  439. ACETAMINOPHEN\CAFFEINE\CODEINE [Concomitant]
     Active Substance: ACETAMINOPHEN\CAFFEINE\CODEINE
     Dosage: UNK UNK, 4X/DAY
     Route: 065
  440. ACETAMINOPHEN\CAFFEINE\CODEINE [Concomitant]
     Active Substance: ACETAMINOPHEN\CAFFEINE\CODEINE
     Dosage: UNK UNK, 4X/DAY
     Route: 065
  441. ACETAMINOPHEN\CAFFEINE\CODEINE [Concomitant]
     Active Substance: ACETAMINOPHEN\CAFFEINE\CODEINE
     Dosage: UNK UNK, 4X/DAY
     Route: 065
  442. ACETAMINOPHEN\CAFFEINE\CODEINE [Concomitant]
     Active Substance: ACETAMINOPHEN\CAFFEINE\CODEINE
     Dosage: UNK UNK, 4X/DAY
     Route: 065
  443. ACETAMINOPHEN\CAFFEINE\CODEINE [Concomitant]
     Active Substance: ACETAMINOPHEN\CAFFEINE\CODEINE
     Dosage: UNK UNK, 4X/DAY
     Route: 065
  444. ACETAMINOPHEN\CAFFEINE\CODEINE [Concomitant]
     Active Substance: ACETAMINOPHEN\CAFFEINE\CODEINE
     Dosage: UNK UNK, 4X/DAY
     Route: 065
  445. ACETAMINOPHEN\CAFFEINE\CODEINE [Concomitant]
     Active Substance: ACETAMINOPHEN\CAFFEINE\CODEINE
     Dosage: UNK UNK, 4X/DAY
     Route: 065
  446. ACETAMINOPHEN\CAFFEINE\CODEINE [Concomitant]
     Active Substance: ACETAMINOPHEN\CAFFEINE\CODEINE
     Dosage: UNK UNK, 4X/DAY
     Route: 065
  447. ACETAMINOPHEN\CAFFEINE\CODEINE [Concomitant]
     Active Substance: ACETAMINOPHEN\CAFFEINE\CODEINE
     Dosage: UNK UNK, 4X/DAY
     Route: 065
  448. ACETAMINOPHEN\CAFFEINE\CODEINE [Concomitant]
     Active Substance: ACETAMINOPHEN\CAFFEINE\CODEINE
     Dosage: UNK UNK, 4X/DAY
     Route: 065
  449. ACETAMINOPHEN\CAFFEINE\CODEINE [Concomitant]
     Active Substance: ACETAMINOPHEN\CAFFEINE\CODEINE
     Dosage: UNK UNK, 4X/DAY
     Route: 065
  450. ACETAMINOPHEN\CAFFEINE\CODEINE [Concomitant]
     Active Substance: ACETAMINOPHEN\CAFFEINE\CODEINE
     Dosage: 60 MILLIGRAM
     Route: 065
  451. ACETAMINOPHEN\CAFFEINE\CODEINE [Concomitant]
     Active Substance: ACETAMINOPHEN\CAFFEINE\CODEINE
     Dosage: UNK
     Route: 065
  452. ACETAMINOPHEN\CAFFEINE\CODEINE [Concomitant]
     Active Substance: ACETAMINOPHEN\CAFFEINE\CODEINE
     Dosage: 4 DOSAGE FORM, QD
     Route: 065
  453. MORPHINE SULFATE [Concomitant]
     Active Substance: MORPHINE SULFATE
     Dosage: 1 DOSAGE FORM, QD
     Route: 065
  454. MORPHINE SULFATE [Concomitant]
     Active Substance: MORPHINE SULFATE
     Dosage: 1 DOSAGE FORM, QD
     Route: 065
  455. MORPHINE SULFATE [Concomitant]
     Active Substance: MORPHINE SULFATE
     Dosage: UNK
     Route: 065
  456. MORPHINE SULFATE [Concomitant]
     Active Substance: MORPHINE SULFATE
     Dosage: 100 MILLIGRAM
     Route: 065
  457. MORPHINE SULFATE [Concomitant]
     Active Substance: MORPHINE SULFATE
     Dosage: 1 DOSAGE FORM, QD
     Route: 065
  458. MORPHINE SULFATE [Concomitant]
     Active Substance: MORPHINE SULFATE
     Dosage: 1 DOSAGE FORM, QD
     Route: 065
  459. MORPHINE SULFATE [Concomitant]
     Active Substance: MORPHINE SULFATE
     Dosage: 1 DOSAGE FORM, QD
     Route: 065
  460. MORPHINE SULFATE [Concomitant]
     Active Substance: MORPHINE SULFATE
     Dosage: 1 DOSAGE FORM, QD
     Route: 065
  461. MORPHINE SULFATE [Concomitant]
     Active Substance: MORPHINE SULFATE
     Dosage: 1 DOSAGE FORM, QD
     Route: 065
  462. MORPHINE SULFATE [Concomitant]
     Active Substance: MORPHINE SULFATE
     Dosage: 1 DOSAGE FORM, QD
     Route: 065
  463. FERROUS FUMARATE [Concomitant]
     Active Substance: FERROUS FUMARATE
     Dosage: 300 MILLIGRAM
     Route: 065
  464. FERROUS FUMARATE [Concomitant]
     Active Substance: FERROUS FUMARATE
     Dosage: UNK
  465. POLYETHYLENE GLYCOLS [Concomitant]
     Active Substance: POLYETHYLENE GLYCOLS
     Dosage: 5 MILLIGRAM
     Route: 065
  466. POLYETHYLENE GLYCOLS [Concomitant]
     Active Substance: POLYETHYLENE GLYCOLS
     Dosage: 1 DF, 1X/DAY
  467. ACETAMINOPHEN\CODEINE PHOSPHATE [Concomitant]
     Active Substance: ACETAMINOPHEN\CODEINE PHOSPHATE
     Dosage: UNK, 0.2 DAYS
     Route: 065
  468. ACETAMINOPHEN\CODEINE PHOSPHATE [Concomitant]
     Active Substance: ACETAMINOPHEN\CODEINE PHOSPHATE
     Dosage: UNK, 0.2 DAYS
     Route: 065
  469. DANAZOL [Concomitant]
     Active Substance: DANAZOL
     Dosage: UNK UNK, BID
     Route: 065
  470. DANAZOL [Concomitant]
     Active Substance: DANAZOL
     Dosage: 1 DOSAGE FORM, QOD
  471. DANAZOL [Concomitant]
     Active Substance: DANAZOL
     Dosage: 1 DOSAGE FORM, BID
  472. ACETAMINOPHEN AND CODEINE [Concomitant]
     Active Substance: ACETAMINOPHEN\CODEINE PHOSPHATE
     Dosage: UNK, 4X/DAY
     Route: 065
  473. ACETAMINOPHEN AND CODEINE [Concomitant]
     Active Substance: ACETAMINOPHEN\CODEINE PHOSPHATE
     Dosage: 4 DOSAGE FORM, QD
     Route: 065
  474. ACETAMINOPHEN AND CODEINE [Concomitant]
     Active Substance: ACETAMINOPHEN\CODEINE PHOSPHATE
     Dosage: UNK, 1X/DAY
  475. ACETAMINOPHEN AND CODEINE [Concomitant]
     Active Substance: ACETAMINOPHEN\CODEINE PHOSPHATE
     Dosage: UNK, 1X/DAY
  476. FLUOXETINE HYDROCHLORIDE [Concomitant]
     Active Substance: FLUOXETINE HYDROCHLORIDE
     Dosage: 20 MILLIGRAM
     Route: 065
  477. FLUOXETINE HYDROCHLORIDE [Concomitant]
     Active Substance: FLUOXETINE HYDROCHLORIDE
     Dosage: 2 DOSAGE FORM BID
  478. FLUOXETINE HYDROCHLORIDE [Concomitant]
     Active Substance: FLUOXETINE HYDROCHLORIDE
     Dosage: 20 MILLIGRAM
     Route: 065
  479. NITROFURANTOIN [Concomitant]
     Active Substance: NITROFURANTOIN
     Dosage: 100 MILLIGRAM ( 2 EVERY 1 DAYS) (1 DOSAGE FORMS)
     Route: 065
  480. NITROFURANTOIN [Concomitant]
     Active Substance: NITROFURANTOIN
     Dosage: 100 MILLIGRAM
     Route: 065
  481. NITROFURANTOIN [Concomitant]
     Active Substance: NITROFURANTOIN
     Dosage: UNK
  482. NITROFURANTOIN [Concomitant]
     Active Substance: NITROFURANTOIN
     Dosage: 1 DOSAGE FORM
     Route: 065
  483. NITROFURANTOIN [Concomitant]
     Active Substance: NITROFURANTOIN
     Dosage: 1 DOSAGE FORM, BID
     Route: 065
  484. CEFALEXIN SODIUM [Concomitant]
     Dosage: 1 DOSAGE FORM, TID
     Route: 065
  485. CEFALEXIN SODIUM [Concomitant]
     Dosage: 1 DOSAGE FORM
     Route: 065
  486. PARACETAMOL/TRAMADOL HYDROCHLORIDE/VITAMIN B1 NOS/VITAMIN B12 NOS [Concomitant]
     Dosage: UNK
  487. PARACETAMOL/TRAMADOL HYDROCHLORIDE/VITAMIN B1 NOS/VITAMIN B12 NOS [Concomitant]
     Dosage: UNK
     Route: 065
  488. DULOXETINE HYDROCHLORIDE [Concomitant]
     Active Substance: DULOXETINE HYDROCHLORIDE
     Indication: Migraine
     Dosage: 1 DOSAGE FORM, BID
     Route: 065
  489. DULOXETINE HYDROCHLORIDE [Concomitant]
     Active Substance: DULOXETINE HYDROCHLORIDE
     Dosage: 1 DOSAGE FORM, QD
     Route: 065
  490. DULOXETINE HYDROCHLORIDE [Concomitant]
     Active Substance: DULOXETINE HYDROCHLORIDE
     Dosage: 1 DOSAGE FORM
     Route: 065
  491. DULOXETINE HYDROCHLORIDE [Concomitant]
     Active Substance: DULOXETINE HYDROCHLORIDE
     Dosage: 60 MILLIGRAM(FREQUENCY UNKNOWN)
     Route: 065
  492. DULOXETINE HYDROCHLORIDE [Concomitant]
     Active Substance: DULOXETINE HYDROCHLORIDE
     Dosage: DOSE AND FREQUENCY UNKNOWN
     Route: 065
  493. DANAZOL [Concomitant]
     Active Substance: DANAZOL
     Dosage: 1 DOSAGE FORM, BID
     Route: 065
  494. DANAZOL [Concomitant]
     Active Substance: DANAZOL
     Dosage: 1 DOSAGE FORM, QOD
     Route: 065
  495. DANAZOL [Concomitant]
     Active Substance: DANAZOL
     Dosage: 1 DF, 1X/DAY
     Route: 048
  496. DANAZOL [Concomitant]
     Active Substance: DANAZOL
     Dosage: 2 DOSAGE FORM, QD
     Route: 065
  497. DANAZOL [Concomitant]
     Active Substance: DANAZOL
     Dosage: 2 DOSAGE FORM
     Route: 065
  498. CEPHALEXIN MONOHYDRATE [Concomitant]
     Active Substance: CEPHALEXIN MONOHYDRATE
     Dosage: 1 DOSAGE FORM, TID
     Route: 065
  499. ALLOPURINOL [Concomitant]
     Active Substance: ALLOPURINOL
     Dosage: 25 MILLIGRAM
     Route: 065
  500. ALLOPURINOL [Concomitant]
     Active Substance: ALLOPURINOL
     Dosage: UNK
  501. AMOXICILLIN\CLARITHROMYCIN\ESOMEPRAZOLE [Concomitant]
     Active Substance: AMOXICILLIN\CLARITHROMYCIN\ESOMEPRAZOLE
     Dosage: UNK
     Route: 065
  502. ALLOPURINOL [Concomitant]
     Active Substance: ALLOPURINOL
     Dosage: 25 MG
     Route: 048
  503. FLUTICASONE PROPIONATE [Concomitant]
     Active Substance: FLUTICASONE PROPIONATE
     Dosage: 2 DF, 2X/DAY (2 DOSAGE FORMS, 12 HR)
     Route: 055
  504. FLUTICASONE PROPIONATE [Concomitant]
     Active Substance: FLUTICASONE PROPIONATE
     Dosage: 2 DOSAGE FORM, QD
     Route: 065
  505. FLUTICASONE PROPIONATE [Concomitant]
     Active Substance: FLUTICASONE PROPIONATE
     Dosage: 2 DOSAGE FORM, BID
     Route: 055
  506. FLUTICASONE PROPIONATE [Concomitant]
     Active Substance: FLUTICASONE PROPIONATE
     Dosage: 2 DOSAGE FORM, TID
     Route: 065
  507. FLUTICASONE PROPIONATE [Concomitant]
     Active Substance: FLUTICASONE PROPIONATE
     Dosage: 2 DOSAGE FORM
     Route: 055
  508. FLUTICASONE PROPIONATE [Concomitant]
     Active Substance: FLUTICASONE PROPIONATE
     Dosage: 2 DOSAGE FORM, QOD
     Route: 055
  509. FLUTICASONE PROPIONATE [Concomitant]
     Active Substance: FLUTICASONE PROPIONATE
     Dosage: UNK
     Route: 065
  510. FLUTICASONE PROPIONATE [Concomitant]
     Active Substance: FLUTICASONE PROPIONATE
     Dosage: 2 DOSAGE FORM, QD
     Route: 065
  511. FLUTICASONE PROPIONATE [Concomitant]
     Active Substance: FLUTICASONE PROPIONATE
     Dosage: 4 DOSAGE FORM, QD (1 EVERY 1 DAYS)
     Route: 065
  512. FLUTICASONE PROPIONATE [Concomitant]
     Active Substance: FLUTICASONE PROPIONATE
     Dosage: 6 DOSAGE FORM, QD (1 EVERY 1 DAYS)
     Route: 065
  513. FLUTICASONE PROPIONATE [Concomitant]
     Active Substance: FLUTICASONE PROPIONATE
     Dosage: 4 DOSAGE FORM
     Route: 065
  514. FLUTICASONE PROPIONATE [Concomitant]
     Active Substance: FLUTICASONE PROPIONATE
     Dosage: 6 DOSAGE FORM
     Route: 065
  515. PANTOPRAZOLE SODIUM [Concomitant]
     Active Substance: PANTOPRAZOLE SODIUM
     Dosage: 1 DOSAGE FORM, BID
     Route: 065
  516. PANTOPRAZOLE SODIUM [Concomitant]
     Active Substance: PANTOPRAZOLE SODIUM
     Dosage: 1 DOSAGE FORM
     Route: 065
  517. PANTOPRAZOLE SODIUM [Concomitant]
     Active Substance: PANTOPRAZOLE SODIUM
     Dosage: 2 DF, 2X/DAY (2 DOSAGE FORMS, 12 HR)
  518. PANTOPRAZOLE SODIUM [Concomitant]
     Active Substance: PANTOPRAZOLE SODIUM
     Dosage: 1 DOSAGE FORM, TID
  519. ALBUTEROL SULFATE [Concomitant]
     Active Substance: ALBUTEROL SULFATE
     Dosage: UNK
     Route: 065
  520. PREDNISONE [Concomitant]
     Active Substance: PREDNISONE
     Dosage: 2 DOSAGE FORM, QD
     Route: 065
  521. SULFADIAZINE\TETROXOPRIM [Concomitant]
     Active Substance: SULFADIAZINE\TETROXOPRIM
     Dosage: 2 DOSAGE FORMS, 1EVERY 1 (DAYS)
     Route: 065

REACTIONS (9)
  - Angioedema [Unknown]
  - Headache [Unknown]
  - Dysphonia [Unknown]
  - Hypersensitivity [Unknown]
  - Swollen tongue [Unknown]
  - Swelling face [Unknown]
  - Drug intolerance [Unknown]
  - Drug ineffective for unapproved indication [Unknown]
  - Off label use [Unknown]
